FAERS Safety Report 5631087-6 (Version None)
Quarter: 2008Q1

REPORT INFORMATION
  Report Type: 
  Country: None (occurrence: None)
  Receive Date: 20080219
  Receipt Date: 20080207
  Transmission Date: 20080703
  Serious: Yes (Other)
  Sender: FDA-Public Use
  Company Number: GB-PFIZER INC-2008012735

PATIENT
  Age: 81 Year
  Sex: Female

DRUGS (2)
  1. SUTENT [Suspect]
     Indication: METASTATIC RENAL CELL CARCINOMA
     Route: 048
  2. METOCLOPRAMIDE [Concomitant]

REACTIONS (4)
  - CHILLS [None]
  - CONFUSIONAL STATE [None]
  - MYOCLONUS [None]
  - SOMNOLENCE [None]
